FAERS Safety Report 7439857-9 (Version None)
Quarter: 2011Q2

REPORT INFORMATION
  Report Type: 
  Country: None (occurrence: None)
  Receive Date: 20110427
  Receipt Date: 20110418
  Transmission Date: 20111010
  Serious: Yes (Hospitalization)
  Sender: FDA-Public Use
  Company Number: GR-US-EMD SERONO, INC.-7054831

PATIENT
  Age: 43 Year
  Sex: Female

DRUGS (4)
  1. T4 [Concomitant]
  2. REBIF [Suspect]
     Indication: MULTIPLE SCLEROSIS
     Route: 058
     Dates: start: 20071201, end: 20110301
  3. REBIF [Suspect]
     Route: 058
     Dates: start: 20110401
  4. CALCIUM D3 [Concomitant]

REACTIONS (1)
  - THYROID NEOPLASM [None]
